FAERS Safety Report 10230001 (Version 2)
Quarter: 2014Q2

REPORT INFORMATION
  Report Type: Spontaneous
  Country: SE (occurrence: SE)
  Receive Date: 20140611
  Receipt Date: 20140618
  Transmission Date: 20141212
  Serious: Yes (Hospitalization)
  Sender: FDA-Public Use
  Company Number: SE-JNJFOC-20140602854

PATIENT
  Age: 73 Year
  Sex: Female

DRUGS (2)
  1. SIMPONI [Suspect]
     Indication: RHEUMATOID ARTHRITIS
     Route: 058
     Dates: start: 20130521, end: 20131228
  2. METHOTREXATE [Concomitant]
     Route: 065
     Dates: start: 20040119

REACTIONS (2)
  - Salmonellosis [Recovered/Resolved]
  - Arthritis bacterial [Not Recovered/Not Resolved]
